FAERS Safety Report 15666650 (Version 1)
Quarter: 2018Q4

REPORT INFORMATION
  Report Type: Spontaneous
  Country: US (occurrence: US)
  Receive Date: 20181128
  Receipt Date: 20181128
  Transmission Date: 20190205
  Serious: No
  Sender: FDA-Public Use
  Company Number: US-ROCHE-2143551

PATIENT
  Age: 28 Year
  Sex: Female

DRUGS (1)
  1. OCREVUS [Suspect]
     Active Substance: OCRELIZUMAB
     Indication: MULTIPLE SCLEROSIS
     Dosage: 2X 300 MG IV INFUSION 15 DAYS APART
     Route: 042

REACTIONS (6)
  - Pruritus [Unknown]
  - Swelling [Unknown]
  - Rash [Unknown]
  - Headache [Unknown]
  - Hypoaesthesia [Unknown]
  - Urticaria [Unknown]
